FAERS Safety Report 13363372 (Version 10)
Quarter: 2018Q2

REPORT INFORMATION
  Report Type: Spontaneous
  Country: US (occurrence: US)
  Receive Date: 20170323
  Receipt Date: 20180601
  Transmission Date: 20180711
  Serious: Yes (Congenital Anomaly, Other)
  Sender: FDA-Public Use
  Company Number: PHEH2017US008536

PATIENT
  Sex: Female

DRUGS (4)
  1. ZOFRAN [Suspect]
     Active Substance: ONDANSETRON HYDROCHLORIDE
     Indication: FOETAL EXPOSURE DURING PREGNANCY
     Dosage: MOTHER^S DOSE: 4 MG, QD
     Route: 064
  2. ZOFRAN [Suspect]
     Active Substance: ONDANSETRON HYDROCHLORIDE
     Indication: FOETAL EXPOSURE DURING PREGNANCY
     Route: 064
  3. ONDANSETRON HYDROCHLORIDE. [Suspect]
     Active Substance: ONDANSETRON HYDROCHLORIDE
     Indication: FOETAL EXPOSURE DURING PREGNANCY
     Route: 064
  4. ONDANSETRON. [Suspect]
     Active Substance: ONDANSETRON
     Indication: FOETAL EXPOSURE DURING PREGNANCY
     Dosage: MOTHER DOSE: 4 MG, UNK
     Route: 064

REACTIONS (67)
  - Pulmonary artery stenosis congenital [Unknown]
  - Right-to-left cardiac shunt [Unknown]
  - Pulmonary valve stenosis congenital [Unknown]
  - Coarctation of the aorta [Unknown]
  - Neonatal respiratory distress [Unknown]
  - Atelectasis [Unknown]
  - Malabsorption [Unknown]
  - Viral infection [Unknown]
  - Pharyngitis [Unknown]
  - Patent ductus arteriosus [Unknown]
  - Left-to-right cardiac shunt [Unknown]
  - Heart disease congenital [Unknown]
  - Right ventricular hypertrophy [Unknown]
  - Pleurisy [Unknown]
  - Cardiomegaly [Unknown]
  - Otitis media [Unknown]
  - Foreign body in ear [Unknown]
  - Cough [Unknown]
  - Diarrhoea [Unknown]
  - Atrial septal defect [Unknown]
  - Congenital pulmonary valve atresia [Unknown]
  - Hypoxia [Unknown]
  - Tachycardia [Unknown]
  - Poor feeding infant [Unknown]
  - Impetigo [Unknown]
  - Skin lesion [Unknown]
  - Nasal congestion [Unknown]
  - Cardiac murmur [Unknown]
  - Tricuspid valve incompetence [Unknown]
  - Premature baby [Unknown]
  - Haematochezia [Unknown]
  - Conjunctivitis [Unknown]
  - Vomiting [Unknown]
  - Fracture [Unknown]
  - Congenital anaemia [Unknown]
  - Pulmonary hypertension [Unknown]
  - Pulmonary valve incompetence [Unknown]
  - Mitral valve incompetence [Unknown]
  - Pneumonia [Unknown]
  - Right ventricular dilatation [Unknown]
  - Jaundice neonatal [Unknown]
  - Injury [Unknown]
  - Cerumen impaction [Unknown]
  - Joint injury [Unknown]
  - Arthralgia [Unknown]
  - Pain in extremity [Unknown]
  - Back pain [Unknown]
  - Ventricular hypoplasia [Unknown]
  - Left ventricular dysfunction [Unknown]
  - Pleural effusion [Unknown]
  - Traumatic haematoma [Unknown]
  - Scoliosis [Unknown]
  - Limb injury [Unknown]
  - Rash [Unknown]
  - Chest pain [Unknown]
  - Neonatal tachypnoea [Unknown]
  - Atrial flutter [Unknown]
  - Foetal exposure during pregnancy [Unknown]
  - Upper respiratory tract infection [Unknown]
  - Muscle strain [Unknown]
  - Cardiac septal defect [Unknown]
  - Right ventricle outflow tract obstruction [Unknown]
  - Pulmonary artery atresia [Unknown]
  - Gastrooesophageal reflux disease [Unknown]
  - Pyrexia [Unknown]
  - Acute sinusitis [Unknown]
  - Asthma [Unknown]
